FAERS Safety Report 19147874 (Version 2)
Quarter: 2021Q2

REPORT INFORMATION
  Report Type: Spontaneous
  Country: US (occurrence: US)
  Receive Date: 20210416
  Receipt Date: 20210416
  Transmission Date: 20210717
  Serious: No
  Sender: FDA-Public Use
  Company Number: US-GALDERMA-US2021005813

PATIENT
  Age: 37 Year
  Sex: Female

DRUGS (16)
  1. PROACTIV RENEWING CLEANSER [Concomitant]
     Active Substance: BENZOYL PEROXIDE
     Route: 061
     Dates: end: 202101
  2. PROACTIV MD ADAPALENE ACNE TREATMENT [Suspect]
     Active Substance: ADAPALENE
     Dosage: 0.1%
     Route: 061
     Dates: end: 202101
  3. PROACTIV MD DEEP CLEANSING FACE WASH [Concomitant]
     Active Substance: COSMETICS
     Route: 061
     Dates: end: 202101
  4. PROACTIV REVITALIZING TONER [Concomitant]
     Active Substance: COSMETICS
     Indication: ACNE
     Route: 061
     Dates: start: 202001
  5. PROACTIV MD DAILY OIL CONTROL SPF 30 [Suspect]
     Active Substance: AVOBENZONE\OCTISALATE\OCTOCRYLENE
     Route: 061
     Dates: end: 202101
  6. PROACTIV REPAIRING TREATMENT [Concomitant]
     Active Substance: BENZOYL PEROXIDE
     Route: 061
     Dates: end: 202101
  7. PROACTIV REVITALIZING TONER [Concomitant]
     Active Substance: COSMETICS
     Route: 061
     Dates: end: 202101
  8. VITAMIN C [Concomitant]
     Active Substance: ASCORBIC ACID
     Indication: PRODUCT USED FOR UNKNOWN INDICATION
  9. PROACTIV MD ADAPALENE ACNE TREATMENT [Suspect]
     Active Substance: ADAPALENE
     Indication: ACNE
     Dosage: 0.1%
     Route: 061
     Dates: start: 202001
  10. VITAMIN D [Concomitant]
     Active Substance: VITAMIN D NOS
     Indication: PRODUCT USED FOR UNKNOWN INDICATION
  11. PROACTIV MD DAILY OIL CONTROL SPF 30 [Suspect]
     Active Substance: AVOBENZONE\OCTISALATE\OCTOCRYLENE
     Indication: ACNE
     Route: 061
     Dates: start: 202001
  12. PROACTIV MD DEEP CLEANSING FACE WASH [Concomitant]
     Active Substance: COSMETICS
     Indication: ACNE
     Route: 061
     Dates: start: 202001
  13. PROACTIV MD BALANCING TONER [Concomitant]
     Active Substance: COSMETICS
     Indication: ACNE
     Route: 061
     Dates: start: 202001
  14. PROACTIV MD BALANCING TONER [Concomitant]
     Active Substance: COSMETICS
     Route: 061
     Dates: end: 202101
  15. PROACTIV RENEWING CLEANSER [Concomitant]
     Active Substance: BENZOYL PEROXIDE
     Indication: ACNE
     Route: 061
     Dates: start: 202001
  16. PROACTIV REPAIRING TREATMENT [Concomitant]
     Active Substance: BENZOYL PEROXIDE
     Indication: ACNE
     Route: 061
     Dates: start: 202001

REACTIONS (6)
  - Skin irritation [Recovered/Resolved]
  - Overdose [Recovered/Resolved]
  - Acne [Recovered/Resolved]
  - Drug ineffective [Unknown]
  - Inappropriate schedule of product administration [Recovered/Resolved]
  - Dry skin [Recovered/Resolved]

NARRATIVE: CASE EVENT DATE: 202001
